FAERS Safety Report 8353947-8 (Version None)
Quarter: 2012Q2

REPORT INFORMATION
  Report Type: 
  Country: None (occurrence: None)
  Receive Date: 20120511
  Receipt Date: 20120509
  Transmission Date: 20120825
  Serious: Yes (Life-Threatening)
  Sender: FDA-Public Use
  Company Number: JP-BRACCO-005856

PATIENT
  Age: 68 Year
  Sex: Male

DRUGS (2)
  1. PROHANCE [Suspect]
     Indication: NUCLEAR MAGNETIC RESONANCE IMAGING
     Route: 042
     Dates: start: 20120420, end: 20120420
  2. PROHANCE [Suspect]
     Indication: METASTASIS
     Route: 042
     Dates: start: 20120420, end: 20120420

REACTIONS (1)
  - SHOCK [None]
